FAERS Safety Report 4732867-1 (Version None)
Quarter: 2005Q3

REPORT INFORMATION
  Report Type: 
  Country: None (occurrence: None)
  Receive Date: 20050801
  Receipt Date: 20050720
  Transmission Date: 20060218
  Serious: Yes (Hospitalization, Other)
  Sender: FDA-Public Use
  Company Number: 2005102264

PATIENT
  Age: 27 Year
  Sex: Female

DRUGS (6)
  1. VIRACEPT [Suspect]
     Indication: HIV TEST POSITIVE
     Dosage: 1250 MG), ORAL
     Route: 048
     Dates: start: 20020808
  2. COVERSYL (PERINDOPRIL) [Suspect]
     Indication: ILL-DEFINED DISORDER
     Dosage: (2 MG, 1 IN 1 D), ORAL
     Route: 048
     Dates: start: 20030101
  3. FUROSEMIDE [Concomitant]
  4. NITROGLYCERIN [Concomitant]
  5. UN-ALFA (ALFACACIDOL) [Concomitant]
  6. AMLODIPINE [Concomitant]

REACTIONS (22)
  - ACUTE PULMONARY OEDEMA [None]
  - ALANINE AMINOTRANSFERASE INCREASED [None]
  - AORTIC VALVE INCOMPETENCE [None]
  - ASPARTATE AMINOTRANSFERASE INCREASED [None]
  - CARDIAC MURMUR [None]
  - CARDIOMEGALY [None]
  - CONDITION AGGRAVATED [None]
  - DIALYSIS [None]
  - DILATATION ATRIAL [None]
  - HEPATIC PAIN [None]
  - HYPERSPLENISM [None]
  - HYPERTENSION [None]
  - HYPERTENSIVE CARDIOMYOPATHY [None]
  - IATROGENIC INJURY [None]
  - LABORATORY TEST ABNORMAL [None]
  - LIVER DISORDER [None]
  - MITRAL VALVE INCOMPETENCE [None]
  - MYOCARDITIS [None]
  - PULMONARY HYPERTENSION [None]
  - RENAL FAILURE CHRONIC [None]
  - TACHYCARDIA [None]
  - VIRAL MYOCARDITIS [None]
